FAERS Safety Report 23261830 (Version 3)
Quarter: 2023Q4

REPORT INFORMATION
  Report Type: Spontaneous
  Country: JP (occurrence: JP)
  Receive Date: 20231205
  Receipt Date: 20231215
  Transmission Date: 20240110
  Serious: Yes (Other)
  Sender: FDA-Public Use
  Company Number: JP-002147023-NVSJ2023JP017120

PATIENT
  Age: 61 Year
  Sex: Female

DRUGS (1)
  1. COSENTYX [Suspect]
     Active Substance: SECUKINUMAB
     Indication: Psoriatic arthropathy
     Dosage: 300 MG, 4W
     Route: 058
     Dates: start: 20230721

REACTIONS (2)
  - Pyoderma gangrenosum [Not Recovered/Not Resolved]
  - Ulcer [Not Recovered/Not Resolved]

NARRATIVE: CASE EVENT DATE: 20231101
